FAERS Safety Report 6251045-0 (Version None)
Quarter: 2009Q2

REPORT INFORMATION
  Report Type: 
  Country: None (occurrence: None)
  Receive Date: 20090630
  Receipt Date: 20081224
  Transmission Date: 20091009
  Serious: No
  Sender: FDA-Public Use
  Company Number: US-ABBOTT-08P-163-0495103-00

PATIENT

DRUGS (1)
  1. ZEMPLAR [Suspect]
     Indication: RENAL FAILURE
     Dates: start: 20080828, end: 20080905

REACTIONS (3)
  - ASTHENIA [None]
  - DYSPNOEA [None]
  - GAIT DISTURBANCE [None]
